FAERS Safety Report 6554803-8 (Version None)
Quarter: 2010Q1

REPORT INFORMATION
  Report Type: 
  Country: None (occurrence: None)
  Receive Date: 20100127
  Receipt Date: 20100122
  Transmission Date: 20100710
  Serious: Yes (Hospitalization, Other)
  Sender: FDA-Public Use
  Company Number: US-RB-001255-10

PATIENT
  Sex: Male

DRUGS (1)
  1. SUBOXONE [Suspect]
     Route: 060
     Dates: start: 20100107, end: 20100118

REACTIONS (6)
  - DEPRESSION [None]
  - FATIGUE [None]
  - HYPERHIDROSIS [None]
  - NECK PAIN [None]
  - PALPITATIONS [None]
  - SUICIDAL IDEATION [None]
